FAERS Safety Report 9164031 (Version 2)
Quarter: 2013Q1

REPORT INFORMATION
  Report Type: Spontaneous
  Country: US (occurrence: US)
  Receive Date: 20130313
  Receipt Date: 20130315
  Transmission Date: 20140127
  Serious: Yes (Other)
  Sender: FDA-Public Use
  Company Number: US-RB-050849-13

PATIENT
  Age: 23 Year
  Sex: Female

DRUGS (1)
  1. MUCINEX D [Suspect]
     Indication: PRODUCT USED FOR UNKNOWN INDICATION
     Dosage: TAKEN FOR 11-12 DAYS
     Route: 048
     Dates: start: 201302, end: 20130224

REACTIONS (2)
  - Epistaxis [Recovered/Resolved]
  - Incorrect drug administration duration [Recovered/Resolved]
